FAERS Safety Report 5327317-0 (Version None)
Quarter: 2007Q2

REPORT INFORMATION
  Report Type: 
  Country: None (occurrence: None)
  Receive Date: 20070511
  Receipt Date: 20070502
  Transmission Date: 20071010
  Serious: Yes (Hospitalization)
  Sender: FDA-Public Use
  Company Number: 163-C5013-07050202

PATIENT
  Age: 59 Year
  Sex: Male
  Weight: 105.1 kg

DRUGS (1)
  1. CC-5013 (LENALIDOMIDE) (CAPSULES) [Suspect]
     Indication: CHRONIC LYMPHOCYTIC LEUKAEMIA
     Dosage: 3 CAPS, DAILY, ORAL
     Route: 048
     Dates: start: 20070430

REACTIONS (3)
  - ABDOMINAL PAIN [None]
  - BACK PAIN [None]
  - TUMOUR FLARE [None]
